FAERS Safety Report 16091348 (Version 1)
Quarter: 2019Q1

REPORT INFORMATION
  Report Type: Spontaneous
  Country: US (occurrence: US)
  Receive Date: 20190319
  Receipt Date: 20190319
  Transmission Date: 20190418
  Serious: Yes (Other)
  Sender: FDA-Public Use
  Company Number: US-TAKEDA-2019TUS014677

PATIENT
  Sex: Male
  Weight: 106.58 kg

DRUGS (12)
  1. CARVEDILOL. [Concomitant]
     Active Substance: CARVEDILOL
     Indication: HYPERTENSION
     Dosage: UNK, BID
     Route: 048
  2. DULERA [Concomitant]
     Active Substance: FORMOTEROL FUMARATE DIHYDRATE\MOMETASONE FUROATE
     Indication: DYSPNOEA
     Dosage: UNK, BID
  3. LEXAPRO [Concomitant]
     Active Substance: ESCITALOPRAM OXALATE
     Dosage: 10 MILLIGRAM, QD
     Route: 048
  4. ULORIC [Suspect]
     Active Substance: FEBUXOSTAT
     Indication: GOUT
     Dosage: 80 MILLIGRAM, QD
     Route: 048
     Dates: end: 20190312
  5. DANAZOL. [Concomitant]
     Active Substance: DANAZOL
     Indication: ANAEMIA
     Dosage: UNK, BID
     Route: 048
  6. LIPITOR [Concomitant]
     Active Substance: ATORVASTATIN CALCIUM
     Indication: BLOOD CHOLESTEROL INCREASED
     Dosage: 40 MILLIGRAM, QD
     Route: 048
  7. ALBUTEROL                          /00139501/ [Concomitant]
     Active Substance: ALBUTEROL
     Indication: DYSPNOEA
     Dosage: UNK
     Route: 055
  8. ULORIC [Suspect]
     Active Substance: FEBUXOSTAT
     Indication: HYPERURICAEMIA
  9. TORSEMIDE. [Concomitant]
     Active Substance: TORSEMIDE
     Dosage: 2.5 MILLIGRAM, QD
     Route: 048
  10. NORVASC [Concomitant]
     Active Substance: AMLODIPINE BESYLATE
     Indication: HYPERTENSION
     Dosage: UNK
     Route: 048
  11. TIKOSYN [Concomitant]
     Active Substance: DOFETILIDE
     Dosage: 125 MICROGRAM, QD
     Route: 048
  12. ASPIRIN                            /00002701/ [Concomitant]
     Active Substance: ASPIRIN
     Dosage: 81 MILLIGRAM, QD
     Route: 048

REACTIONS (6)
  - Atrial fibrillation [Recovered/Resolved]
  - Cardiac dysfunction [Unknown]
  - Gait disturbance [Unknown]
  - Dyspnoea [Recovering/Resolving]
  - Anaemia [Recovered/Resolved]
  - Cardiac failure [Unknown]
